FAERS Safety Report 6167092-3 (Version None)
Quarter: 2009Q2

REPORT INFORMATION
  Report Type: 
  Country: None (occurrence: None)
  Receive Date: 20090424
  Receipt Date: 20090422
  Transmission Date: 20091009
  Serious: Yes (Hospitalization)
  Sender: FDA-Public Use
  Company Number: FR-BRISTOL-MYERS SQUIBB COMPANY-14509517

PATIENT
  Age: 32 Year
  Sex: Male

DRUGS (7)
  1. AMIKLIN INJ [Suspect]
     Indication: ANTIBIOTIC THERAPY
     Dosage: STOPED ON 22FEB08,REINTRODUCED ON 14MAR09
     Route: 042
     Dates: start: 20080220
  2. AXEPIM INJ [Suspect]
     Indication: ANTIBIOTIC THERAPY
     Route: 042
     Dates: start: 20080220, end: 20080223
  3. BRISTOPEN INJ [Suspect]
     Indication: ANTIBIOTIC THERAPY
     Route: 042
     Dates: start: 20080225, end: 20080226
  4. AUGMENTIN '125' [Suspect]
     Indication: ANTIBIOTIC THERAPY
     Route: 048
  5. VANCOMYCIN HCL [Suspect]
     Indication: ANTIBIOTIC THERAPY
     Dosage: STOPED ON 28FEB08,REINTRODUCED ON 10MAR09
     Route: 042
     Dates: start: 20080220
  6. FOSFOCINE [Suspect]
     Indication: ANTIBIOTIC THERAPY
     Dates: start: 20080222, end: 20080227
  7. TIENAM [Suspect]
     Indication: ANTIBIOTIC THERAPY
     Route: 042
     Dates: start: 20080226, end: 20080305

REACTIONS (1)
  - PSEUDOMEMBRANOUS COLITIS [None]
